FAERS Safety Report 8081661-5 (Version None)
Quarter: 2012Q1

REPORT INFORMATION
  Report Type: 
  Country: None (occurrence: None)
  Receive Date: 20120130
  Receipt Date: 20120126
  Transmission Date: 20120608
  Serious: Yes (Death, Hospitalization)
  Sender: FDA-Public Use
  Company Number: US-AMGEN-USASP2011023897

PATIENT
  Age: 79 Year
  Sex: Male
  Weight: 64.853 kg

DRUGS (3)
  1. CORTICOSTEROIDS [Concomitant]
  2. NPLATE [Suspect]
     Indication: IDIOPATHIC THROMBOCYTOPENIC PURPURA
     Dosage: 1 MUG/KG, UNK
     Route: 058
     Dates: start: 20100120, end: 20101129
  3. RITUXIMAB [Concomitant]

REACTIONS (2)
  - WALDENSTROM'S MACROGLOBULINAEMIA [None]
  - HOSPITALISATION [None]
